FAERS Safety Report 9213821 (Version 3)
Quarter: 2013Q2

REPORT INFORMATION
  Report Type: Spontaneous
  Country: GB (occurrence: GB)
  Receive Date: 20130405
  Receipt Date: 20130520
  Transmission Date: 20140414
  Serious: Yes (Other)
  Sender: FDA-Public Use
  Company Number: GB-BRISTOL-MYERS SQUIBB COMPANY-18726927

PATIENT
  Age: 26 Year
  Sex: Female

DRUGS (4)
  1. KENALOG-40 INJ [Suspect]
     Indication: ARTHRALGIA
     Dosage: 2 INJ:1 DOSE IN EACH HIP
     Route: 030
     Dates: start: 20130320
  2. YASMIN [Suspect]
     Indication: CONTRACEPTION
     Dosage: 1DF:0.03 MG/3 MG
     Route: 048
     Dates: start: 20121121, end: 20130319
  3. SALBUTAMOL [Concomitant]
  4. SERETIDE [Concomitant]

REACTIONS (1)
  - Abnormal withdrawal bleeding [Not Recovered/Not Resolved]
